FAERS Safety Report 23264102 (Version 1)
Quarter: 2023Q4

REPORT INFORMATION
  Report Type: Report from Study
  Country: US (occurrence: US)
  Receive Date: 20231205
  Receipt Date: 20231205
  Transmission Date: 20240110
  Serious: Yes (Other)
  Sender: FDA-Public Use
  Company Number: US-MYLANLABS-2023M1128022

PATIENT
  Age: 6 Year
  Weight: 24.3 kg

DRUGS (2)
  1. ADENOSINE [Suspect]
     Active Substance: ADENOSINE
     Indication: Scan myocardial perfusion
     Dosage: 110 MICROGRAM/KILOGRAM, QMINUTE, ~INTRAVENOUS INFUSION
     Route: 042
  2. ADENOSINE [Suspect]
     Active Substance: ADENOSINE
     Indication: Magnetic resonance imaging heart

REACTIONS (2)
  - Hypotension [Recovered/Resolved]
  - Off label use [Unknown]
